FAERS Safety Report 11057114 (Version 1)
Quarter: 2015Q2

REPORT INFORMATION
  Report Type: Spontaneous
  Country: US (occurrence: US)
  Receive Date: 20150422
  Receipt Date: 20150422
  Transmission Date: 20150821
  Serious: Yes (Other)
  Sender: FDA-Public Use
  Company Number: US-PFIZER INC-2015133198

PATIENT
  Age: 31 Year
  Sex: Male
  Weight: 77.98 kg

DRUGS (2)
  1. VIAGRA [Suspect]
     Active Substance: SILDENAFIL CITRATE
     Dosage: UNK
     Dates: start: 20150404
  2. VIAGRA [Suspect]
     Active Substance: SILDENAFIL CITRATE
     Dosage: UNK
     Dates: start: 20150403

REACTIONS (2)
  - Genital disorder male [Recovered/Resolved]
  - Acquired phimosis [Recovered/Resolved]

NARRATIVE: CASE EVENT DATE: 20150403
